FAERS Safety Report 9966660 (Version 2)
Quarter: 2014Q1

REPORT INFORMATION
  Report Type: Report from Study
  Country: US (occurrence: US)
  Receive Date: 20140305
  Receipt Date: 20140305
  Transmission Date: 20141002
  Serious: No
  Sender: FDA-Public Use
  Company Number: US-ABBVIE-13P-163-1080320-00

PATIENT
  Age: 53 Year
  Sex: Male

DRUGS (10)
  1. HUMIRA [Suspect]
     Indication: CROHN^S DISEASE
     Dates: start: 20130111
  2. NORVASC [Concomitant]
     Indication: HYPERTENSION
  3. VYVANSE [Concomitant]
     Indication: ATTENTION DEFICIT/HYPERACTIVITY DISORDER
  4. CYMBALTA [Concomitant]
     Indication: ANXIETY
  5. CYMBALTA [Concomitant]
     Indication: DEPRESSION
  6. PRILOSEC [Concomitant]
     Indication: GASTROOESOPHAGEAL REFLUX DISEASE
  7. VALSARTAN-HCTZ [Concomitant]
     Indication: PRODUCT USED FOR UNKNOWN INDICATION
  8. BENICAR [Concomitant]
     Indication: PRODUCT USED FOR UNKNOWN INDICATION
     Dosage: 40/25 MG DAILY
  9. BENICAR [Concomitant]
     Dosage: 40/25 MG DAILY
  10. OXYCODONE [Concomitant]
     Indication: PRODUCT USED FOR UNKNOWN INDICATION

REACTIONS (6)
  - Pain [Recovered/Resolved]
  - Arthralgia [Not Recovered/Not Resolved]
  - Blood uric acid increased [Not Recovered/Not Resolved]
  - Antinuclear antibody positive [Not Recovered/Not Resolved]
  - Dermatitis contact [Recovered/Resolved]
  - Blood pressure increased [Unknown]
